FAERS Safety Report 10099086 (Version 2)
Quarter: 2014Q2

REPORT INFORMATION
  Report Type: Spontaneous
  Country: US (occurrence: US)
  Receive Date: 20140423
  Receipt Date: 20140506
  Transmission Date: 20141212
  Serious: Yes (Other)
  Sender: FDA-Public Use
  Company Number: US-BAYER-2014-058210

PATIENT
  Age: 22 Year
  Sex: Female

DRUGS (8)
  1. YAZ [Suspect]
     Dosage: UNK
     Dates: start: 200802, end: 201101
  2. YASMIN [Suspect]
     Dosage: UNK
     Dates: start: 200802, end: 201101
  3. GIANVI [Suspect]
     Dosage: UNK
     Dates: start: 200802, end: 201101
  4. OCELLA [Suspect]
     Dosage: UNK
     Dates: start: 200802, end: 201101
  5. POLYETHYLENE GLYCOL [Concomitant]
     Dosage: 3350
     Dates: start: 20101123
  6. MOVIPREP [Concomitant]
     Dosage: UNK
     Dates: start: 20101123
  7. ACYCLOVIR [ACICLOVIR] [Concomitant]
     Dosage: 200 MG, UNK
     Dates: start: 20101103
  8. FERROUS SULFATE [Concomitant]

REACTIONS (4)
  - Deep vein thrombosis [None]
  - Pulmonary embolism [None]
  - Pain [None]
  - Injury [None]
